FAERS Safety Report 17093940 (Version 2)
Quarter: 2019Q4

REPORT INFORMATION
  Report Type: Spontaneous
  Country: JP (occurrence: JP)
  Receive Date: 20191129
  Receipt Date: 20191217
  Transmission Date: 20200122
  Serious: Yes (Other)
  Sender: FDA-Public Use
  Company Number: JP-BRISTOL-MYERS SQUIBB COMPANY-BMS-2018-049619

PATIENT
  Age: 63 Year
  Sex: Male

DRUGS (1)
  1. OPDIVO [Suspect]
     Active Substance: NIVOLUMAB
     Indication: GASTRIC CANCER RECURRENT
     Dosage: 3 MG/KG, Q2WK
     Route: 041
     Dates: start: 20180131

REACTIONS (6)
  - Adrenal insufficiency [Unknown]
  - Infective spondylitis [Unknown]
  - Fungaemia [Not Recovered/Not Resolved]
  - Septic pulmonary embolism [Unknown]
  - Liver disorder [Recovering/Resolving]
  - Bacteraemia [Unknown]

NARRATIVE: CASE EVENT DATE: 2018
